FAERS Safety Report 21384289 (Version 1)
Quarter: 2022Q3

REPORT INFORMATION
  Report Type: Spontaneous
  Country: FR (occurrence: FR)
  Receive Date: 20220928
  Receipt Date: 20220928
  Transmission Date: 20221026
  Serious: Yes (Hospitalization, Other)
  Sender: FDA-Public Use
  Company Number: FR-DENTSPLY-2022SCDP000275

PATIENT
  Age: 15 Year
  Sex: Female
  Weight: 47 kg

DRUGS (1)
  1. EPINEPHRINE BITARTRATE\LIDOCAINE HYDROCHLORIDE [Suspect]
     Active Substance: EPINEPHRINE BITARTRATE\LIDOCAINE HYDROCHLORIDE
     Indication: Local anaesthesia
     Dosage: 1 DOSAGE FORM TOTAL
     Dates: start: 20220623

REACTIONS (1)
  - Hyperthermia malignant [Recovered/Resolved]

NARRATIVE: CASE EVENT DATE: 20220623
